FAERS Safety Report 17790462 (Version 1)
Quarter: 2020Q2

REPORT INFORMATION
  Report Type: Spontaneous
  Country: CN (occurrence: CN)
  Receive Date: 20200515
  Receipt Date: 20200515
  Transmission Date: 20200714
  Serious: Yes (Other)
  Sender: FDA-Public Use
  Company Number: CN-BAYER-2020-084558

PATIENT
  Age: 64 Year
  Sex: Male

DRUGS (5)
  1. NEXAVAR [Suspect]
     Active Substance: SORAFENIB
     Indication: HEPATOCELLULAR CARCINOMA
     Dosage: 200 MG, BID
     Route: 048
     Dates: start: 20190201, end: 20190228
  2. STIVARGA [Suspect]
     Active Substance: REGORAFENIB
     Indication: HEPATOCELLULAR CARCINOMA
     Dosage: 160 MG, QD  (TOOK 3 WEEKS AND STOP 1 WEEK, 4 WEEKS PER TREATMENT COURSE)
     Route: 048
     Dates: start: 20191002
  3. STIVARGA [Suspect]
     Active Substance: REGORAFENIB
     Indication: METASTASES TO LUNG
     Dosage: 120 MG, QD  (TOOK 3 WEEKS AND STOP 1 WEEK, 4 WEEKS PER TREATMENT COURSE)
     Route: 048
     Dates: start: 20190907, end: 20191001
  4. STIVARGA [Suspect]
     Active Substance: REGORAFENIB
     Indication: HEPATOCELLULAR CARCINOMA
     Dosage: 160 MG, QD (TOOK 3 WEEKS AND STOP 1 WEEK, 4 WEEKS PER TREATMENT COURSE)
     Route: 048
     Dates: start: 20190420, end: 20190906
  5. NEXAVAR [Suspect]
     Active Substance: SORAFENIB
     Indication: METASTASES TO LUNG
     Dosage: 400 MG, BID
     Route: 048
     Dates: start: 20190301, end: 20190419

REACTIONS (8)
  - Palmar-plantar erythrodysaesthesia syndrome [None]
  - Albumin urine present [None]
  - Gingival bleeding [None]
  - Blood pressure increased [Recovering/Resolving]
  - Oropharyngeal pain [None]
  - Metastases to lung [None]
  - Epistaxis [None]
  - Off label use [None]

NARRATIVE: CASE EVENT DATE: 20190201
